FAERS Safety Report 11762473 (Version 1)
Quarter: 2015Q4

REPORT INFORMATION
  Report Type: Spontaneous
  Country: US (occurrence: US)
  Receive Date: 20151120
  Receipt Date: 20151120
  Transmission Date: 20160304
  Serious: No
  Sender: FDA-Public Use
  Company Number: US-ELI_LILLY_AND_COMPANY-US201211006319

PATIENT
  Age: 65 Year
  Sex: Female

DRUGS (3)
  1. FORTEO [Suspect]
     Active Substance: TERIPARATIDE
     Dosage: 20 UG, QD
  2. FORTEO [Suspect]
     Active Substance: TERIPARATIDE
     Dosage: 20 UG, QD
  3. FORTEO [Suspect]
     Active Substance: TERIPARATIDE
     Indication: OSTEOPOROSIS
     Dosage: 20 UG, QD
     Dates: start: 20121115

REACTIONS (9)
  - Injection site bruising [Unknown]
  - Bone pain [Unknown]
  - Nervousness [Unknown]
  - Injection site haemorrhage [Unknown]
  - Anxiety [Unknown]
  - Drug dose omission [Unknown]
  - Arthralgia [Unknown]
  - Fear [Unknown]
  - Injection site erythema [Unknown]

NARRATIVE: CASE EVENT DATE: 20121115
